FAERS Safety Report 7603577-8 (Version None)
Quarter: 2011Q2

REPORT INFORMATION
  Report Type: 
  Country: None (occurrence: None)
  Receive Date: 20110629
  Receipt Date: 20110614
  Transmission Date: 20111010
  Serious: Yes (Other)
  Sender: FDA-Public Use
  Company Number: B0727858A

PATIENT

DRUGS (3)
  1. ANTICOAGULANT (FORMULATION UNKNOWN) (ANTICOAGULANT) [Suspect]
     Indication: DEEP VEIN THROMBOSIS
     Dosage: TRANSPLACENTARY
     Route: 064
  2. HEPARIN [Suspect]
     Indication: DEEP VEIN THROMBOSIS
     Dosage: TRANSPLACENTARY
     Route: 064
  3. PROPRANOLOL HYDROCHLORIDE [Suspect]
     Indication: HYPERTENSION
     Dosage: TRANSPLACENTARY
     Route: 064

REACTIONS (5)
  - MATERNAL DRUGS AFFECTING FOETUS [None]
  - PREMATURE BABY [None]
  - APGAR SCORE LOW [None]
  - FOETAL DISTRESS SYNDROME [None]
  - CAESAREAN SECTION [None]
